FAERS Safety Report 18381667 (Version 1)
Quarter: 2020Q4

REPORT INFORMATION
  Report Type: Spontaneous
  Country: DE (occurrence: DE)
  Receive Date: 20201014
  Receipt Date: 20201014
  Transmission Date: 20210114
  Serious: Yes (Hospitalization, Other)
  Sender: FDA-Public Use
  Company Number: DE-SAMSUNG BIOEPIS-SB-2020-30866

PATIENT
  Age: 70 Year
  Sex: Female
  Weight: 89 kg

DRUGS (6)
  1. METOPROLOL. [Concomitant]
     Active Substance: METOPROLOL
     Indication: HYPERTENSION
     Route: 065
  2. TRASTUZUMAB. [Suspect]
     Active Substance: TRASTUZUMAB
     Indication: HER2 POSITIVE BREAST CANCER
     Dosage: DAY 1?ON 08-DEC-2018, MOST RECENT DOSE OF TRASTUZUMAB WAS RECEIVED.
     Route: 042
     Dates: start: 20171006
  3. PACLITAXEL. [Suspect]
     Active Substance: PACLITAXEL
     Indication: HER2 POSITIVE BREAST CANCER
     Dosage: DOSE: DAY 01, 08 AND 15 AND DRUG INTERVAL DOSAGE UNIT NUMBER 21, ON 08-DEC-2018, MOST RECENT DOSE OF
     Route: 065
     Dates: start: 20171006
  4. ZOLEDRONIC ACID [Suspect]
     Active Substance: ZOLEDRONIC ACID
     Indication: HER2 POSITIVE BREAST CANCER
     Dosage: ON 01-DEC-2017, RECEIVED MOST RECENT DOSE OF ZOLEDRONIC ACID.
     Route: 065
     Dates: start: 20171103
  5. LOSARTAN. [Concomitant]
     Active Substance: LOSARTAN
     Indication: HYPERTENSION
     Dosage: UNKNOWN
     Route: 065
  6. PERTUZUMAB. [Suspect]
     Active Substance: PERTUZUMAB
     Indication: HER2 POSITIVE BREAST CANCER
     Dosage: DAY 1?ON 08-DEC-2018, MOST RECENT DOSE OF PERTUZUMAB WAS RECEIVED.
     Route: 065
     Dates: start: 20171006

REACTIONS (4)
  - Nail discolouration [Recovered/Resolved]
  - General physical health deterioration [Unknown]
  - Toxic epidermal necrolysis [Recovered/Resolved]
  - Decreased appetite [Recovered/Resolved]

NARRATIVE: CASE EVENT DATE: 20180313
